FAERS Safety Report 9417360 (Version 1)
Quarter: 2013Q3

REPORT INFORMATION
  Report Type: Spontaneous
  Country: US (occurrence: US)
  Receive Date: 20130724
  Receipt Date: 20130724
  Transmission Date: 20140515
  Serious: No
  Sender: FDA-Public Use
  Company Number: US-BRISTOL-MYERS SQUIBB COMPANY-18862581

PATIENT
  Age: 66 Year
  Sex: Male
  Weight: 75.73 kg

DRUGS (3)
  1. APIXABAN [Suspect]
     Indication: ATRIAL FIBRILLATION
  2. TOPROL [Concomitant]
  3. PROTONIX [Concomitant]

REACTIONS (2)
  - Lacrimation increased [Unknown]
  - Rhinorrhoea [Unknown]
